FAERS Safety Report 9672124 (Version 2)
Quarter: 2013Q4

REPORT INFORMATION
  Report Type: Spontaneous
  Country: US (occurrence: US)
  Receive Date: 20131106
  Receipt Date: 20131126
  Transmission Date: 20140711
  Serious: Yes (Other)
  Sender: FDA-Public Use
  Company Number: US-JNJFOC-20131017201

PATIENT
  Age: 19 Year
  Sex: Female

DRUGS (4)
  1. PREZISTA [Suspect]
     Indication: ANTIVIRAL TREATMENT
     Route: 048
  2. NORVIR [Suspect]
     Indication: ANTIVIRAL TREATMENT
     Route: 048
  3. TRUVADA [Suspect]
     Indication: ANTIVIRAL TREATMENT
     Route: 048
     Dates: end: 20120719
  4. COMBIVIR [Suspect]
     Indication: ANTIVIRAL TREATMENT
     Route: 048
     Dates: start: 20120719

REACTIONS (2)
  - Abortion spontaneous [Unknown]
  - Exposure during pregnancy [Recovered/Resolved]
